FAERS Safety Report 6536799-8 (Version None)
Quarter: 2010Q1

REPORT INFORMATION
  Report Type: 
  Country: None (occurrence: None)
  Receive Date: 20100106
  Receipt Date: 20091223
  Transmission Date: 20100710
  Serious: Yes (Hospitalization)
  Sender: FDA-Public Use
  Company Number: 003561

PATIENT
  Sex: Male
  Weight: 51.5 kg

DRUGS (3)
  1. XYZAL [Suspect]
     Indication: X-RAY
     Dosage: (5 MG QD, SINGLE DOSE ORAL)
     Route: 048
     Dates: start: 20091210, end: 20091210
  2. DORSIFLEX /00167701/ [Concomitant]
  3. APO-IBUPROFEN [Concomitant]

REACTIONS (9)
  - ASTHENIA [None]
  - DYSARTHRIA [None]
  - EUPHORIC MOOD [None]
  - FATIGUE [None]
  - HEADACHE [None]
  - NAUSEA [None]
  - NECK PAIN [None]
  - SOMNOLENCE [None]
  - TINNITUS [None]
